FAERS Safety Report 4341145-4 (Version None)
Quarter: 2004Q2

REPORT INFORMATION
  Report Type: 
  Country: None (occurrence: None)
  Receive Date: 20040419
  Receipt Date: 20001124
  Transmission Date: 20050107
  Serious: Yes (Hospitalization)
  Sender: FDA-Public Use
  Company Number: FR-GLAXOSMITHKLINE-B0093660A

PATIENT
  Sex: Male

DRUGS (5)
  1. EPIVIR [Suspect]
     Indication: ANTIVIRAL PROPHYLAXIS
     Route: 048
  2. RETROVIR [Suspect]
     Indication: ANTIVIRAL PROPHYLAXIS
     Route: 042
     Dates: start: 19980821, end: 19980905
  3. LAMIVUDINE [Suspect]
     Indication: HIV INFECTION
  4. RITONAVIR [Suspect]
     Indication: HIV INFECTION
  5. STAVUDINE [Suspect]
     Indication: HIV INFECTION

REACTIONS (25)
  - AMNIOTIC CAVITY DISORDER [None]
  - ANAEMIA [None]
  - ANAEMIA NEONATAL [None]
  - BLOOD CREATINE PHOSPHOKINASE INCREASED [None]
  - BLOOD KETONE BODY INCREASED [None]
  - BLOOD PYRUVIC ACID DECREASED [None]
  - DEVELOPMENTAL DELAY [None]
  - DYSPRAXIA [None]
  - ENCOPRESIS [None]
  - ENURESIS [None]
  - GAIT DISTURBANCE [None]
  - HEPATIC ENZYME DECREASED [None]
  - LABORATORY TEST ABNORMAL [None]
  - LIMB MALFORMATION [None]
  - MATERNAL DRUGS AFFECTING FOETUS [None]
  - METABOLIC DISORDER [None]
  - MOTOR DYSFUNCTION [None]
  - MUSCLE ATROPHY [None]
  - MUSCULOSKELETAL DISORDER [None]
  - NEONATAL DISORDER [None]
  - NEONATAL RESPIRATORY DISTRESS SYNDROME [None]
  - OVERDOSE [None]
  - PREMATURE BABY [None]
  - RESPIRATORY DISTRESS [None]
  - THROMBOCYTOPENIA [None]
